FAERS Safety Report 19418798 (Version 5)
Quarter: 2021Q4

REPORT INFORMATION
  Report Type: Other
  Country: GB (occurrence: GB)
  Receive Date: 20210615
  Receipt Date: 20211004
  Transmission Date: 20220303
  Serious: Yes (Death, Life-Threatening, Hospitalization, Disabling, Other)
  Sender: FDA-Public Use
  Company Number: None

PATIENT
  Age: 5 Year
  Sex: Male
  Weight: 9.7 kg

DRUGS (37)
  1. CIPROFLOXACIN [Suspect]
     Active Substance: CIPROFLOXACIN
     Indication: Product used for unknown indication
     Dosage: UNK
     Route: 065
  2. POTASSIUM CHLORIDE [Suspect]
     Active Substance: POTASSIUM CHLORIDE
     Indication: Pneumonia
     Dosage: UNK
     Route: 065
  3. POTASSIUM CHLORIDE [Suspect]
     Active Substance: POTASSIUM CHLORIDE
     Dosage: UNK
     Route: 065
  4. PENICILLIN G [Suspect]
     Active Substance: PENICILLIN G
     Indication: Product used for unknown indication
     Dosage: UNK
     Route: 065
  5. CEFUROXIME AXETIL [Suspect]
     Active Substance: CEFUROXIME AXETIL
     Indication: Antibiotic therapy
     Dosage: UNK
     Route: 042
  6. AMOXICILLIN\CLAVULANATE POTASSIUM [Suspect]
     Active Substance: AMOXICILLIN\CLAVULANATE POTASSIUM
     Indication: Pneumonia
     Dosage: UNK
     Route: 065
     Dates: start: 20150611
  7. AMOXICILLIN\CLAVULANATE POTASSIUM [Suspect]
     Active Substance: AMOXICILLIN\CLAVULANATE POTASSIUM
     Dosage: UNK
     Route: 065
     Dates: start: 20150714, end: 20160720
  8. PULMOZYME [Suspect]
     Active Substance: DORNASE ALFA
     Indication: Interstitial lung disease
     Dosage: UNK
     Route: 065
  9. PULMOZYME [Suspect]
     Active Substance: DORNASE ALFA
     Dosage: UNK
     Route: 065
  10. PULMOZYME [Suspect]
     Active Substance: DORNASE ALFA
     Dosage: UNK
     Route: 065
  11. PULMOZYME [Suspect]
     Active Substance: DORNASE ALFA
     Dosage: UNK, PULMOZYME
     Route: 065
  12. PULMOZYME [Suspect]
     Active Substance: DORNASE ALFA
     Dosage: UNK, PULMOZYME
     Route: 065
  13. DURAGESIC [Suspect]
     Active Substance: FENTANYL
     Indication: Pneumococcal infection
     Dosage: UNK
     Route: 065
  14. DURAGESIC [Suspect]
     Active Substance: FENTANYL
     Dosage: UNK
     Route: 065
  15. DURAGESIC [Suspect]
     Active Substance: FENTANYL
     Dosage: UNK
     Route: 065
  16. GENTAMICIN [Suspect]
     Active Substance: GENTAMICIN
     Indication: Measles immunisation
     Dosage: UNK
     Route: 042
  17. GENTAMICIN [Suspect]
     Active Substance: GENTAMICIN
     Indication: Pneumococcal sepsis
     Dosage: UNK
     Route: 065
  18. GENTAMICIN [Suspect]
     Active Substance: GENTAMICIN
     Indication: Antibiotic therapy
     Dosage: UNK
     Route: 042
  19. GENTAMICIN [Suspect]
     Active Substance: GENTAMICIN
     Indication: Rubella immunisation
     Dosage: UNK
     Route: 065
  20. GENTAMICIN [Suspect]
     Active Substance: GENTAMICIN
     Indication: Mumps immunisation
     Dosage: UNK
     Route: 042
  21. DEXTROSE [Suspect]
     Active Substance: DEXTROSE
     Indication: Pneumonia
     Dosage: UNK
     Route: 065
  22. M-M-RVAXPRO [Suspect]
     Active Substance: MEASLES VIRUS STRAIN ENDERS^ ATTENUATED EDMONSTON LIVE ANTIGEN\MUMPS VIRUS STRAIN B LEVEL JERYL LYNN
     Indication: Pneumococcal sepsis
     Dosage: UNK
     Route: 065
  23. MEROPENEM [Suspect]
     Active Substance: MEROPENEM
     Indication: Antibiotic therapy
     Dosage: UNK
     Route: 065
  24. MUMPS VIRUS VACCINE LIVE NOS [Suspect]
     Active Substance: MUMPS VIRUS STRAIN B LEVEL JERYL LYNN LIVE ANTIGEN
     Indication: Pneumococcal sepsis
     Dosage: UNK
     Route: 065
  25. PENICILLIN V [Suspect]
     Active Substance: PENICILLIN V
     Indication: Antibiotic therapy
     Dosage: UNK
     Route: 065
  26. PIPERACILLIN AND TAZOBACTAM [Suspect]
     Active Substance: PIPERACILLIN SODIUM\TAZOBACTAM SODIUM
     Indication: Vomiting
     Dosage: UNK
     Route: 065
  27. PIPERACILLIN AND TAZOBACTAM [Suspect]
     Active Substance: PIPERACILLIN SODIUM\TAZOBACTAM SODIUM
     Indication: Respiratory arrest
     Dosage: UNK
     Route: 065
  28. PROPOFOL [Suspect]
     Active Substance: PROPOFOL
     Indication: Product used for unknown indication
     Dosage: UNK
     Route: 065
  29. RUBELLA VIRUS VACCINE LIVE ATTENUATED [Suspect]
     Active Substance: RUBELLA VIRUS STRAIN WISTAR RA 27/3 LIVE ANTIGEN
     Indication: Pneumococcal sepsis
     Dosage: UNK
     Route: 065
  30. VENTOLIN [Suspect]
     Active Substance: ALBUTEROL SULFATE
     Indication: Product used for unknown indication
     Dosage: UNK
     Route: 065
  31. VENTOLIN [Suspect]
     Active Substance: ALBUTEROL SULFATE
     Dosage: UNK, VENTOLIN
     Route: 065
  32. SODIUM CHLORIDE [Suspect]
     Active Substance: SODIUM CHLORIDE
     Indication: Pneumonia
     Dosage: UNK
     Route: 065
  33. SODIUM CHLORIDE [Suspect]
     Active Substance: SODIUM CHLORIDE
     Dosage: UNK
     Route: 065
  34. TRISODIUM CITRATE DIHYDRATE [Suspect]
     Active Substance: TRISODIUM CITRATE DIHYDRATE
     Indication: Pneumonia
     Dosage: UNK
     Route: 065
  35. TRISODIUM CITRATE DIHYDRATE [Suspect]
     Active Substance: TRISODIUM CITRATE DIHYDRATE
     Dosage: UNK
     Route: 065
  36. AMOXICILLIN TRIHYDRATE [Suspect]
     Active Substance: AMOXICILLIN
     Indication: Product used for unknown indication
     Dosage: UNK
     Route: 065
  37. CLAVULANATE POTASSIUM [Suspect]
     Active Substance: CLAVULANATE POTASSIUM
     Indication: Product used for unknown indication
     Dosage: UNK
     Route: 065

REACTIONS (47)
  - Malaise [Fatal]
  - Chest X-ray abnormal [Fatal]
  - Motor dysfunction [Fatal]
  - Condition aggravated [Fatal]
  - Cerebral ischaemia [Fatal]
  - Dyspnoea [Fatal]
  - Circulatory collapse [Fatal]
  - Injury [Fatal]
  - Interstitial lung disease [Fatal]
  - Sputum increased [Fatal]
  - Disease complication [Fatal]
  - Muscular weakness [Fatal]
  - Pneumonia [Fatal]
  - Dysphagia [Fatal]
  - Brain injury [Fatal]
  - Increased bronchial secretion [Fatal]
  - Pyrexia [Fatal]
  - Respiratory tract infection bacterial [Fatal]
  - Pneumococcal sepsis [Fatal]
  - Pneumonia aspiration [Fatal]
  - Inflammation [Fatal]
  - Dehydration [Fatal]
  - Spinal muscular atrophy [Fatal]
  - Tachypnoea [Fatal]
  - Lung consolidation [Fatal]
  - Vomiting [Fatal]
  - Respiratory arrest [Fatal]
  - Atelectasis [Fatal]
  - Metabolic disorder [Fatal]
  - Intestinal ischaemia [Fatal]
  - Ischaemic cerebral infarction [Fatal]
  - Diarrhoea [Fatal]
  - Intestinal ischaemia [Fatal]
  - Chest X-ray abnormal [Fatal]
  - Lower respiratory tract infection bacterial [Fatal]
  - Secretion discharge [Fatal]
  - Scoliosis [Fatal]
  - Ascites [Fatal]
  - Demyelination [Fatal]
  - Motor neurone disease [Fatal]
  - Muscle atrophy [Fatal]
  - Bronchial disorder [Fatal]
  - Dysphagia [Fatal]
  - Dyspnoea [Fatal]
  - Lung infiltration [Fatal]
  - Brain injury [Fatal]
  - Off label use [Unknown]

NARRATIVE: CASE EVENT DATE: 20160620
